FAERS Safety Report 21855841 (Version 11)
Quarter: 2025Q1

REPORT INFORMATION
  Report Type: Report from Study
  Country: CA (occurrence: CA)
  Receive Date: 20230112
  Receipt Date: 20250218
  Transmission Date: 20250408
  Serious: Yes (Other)
  Sender: ROCHE
  Company Number: CA-ROCHE-2975521

PATIENT
  Age: 41 Year
  Sex: Female

DRUGS (5)
  1. OCREVUS [Suspect]
     Active Substance: OCRELIZUMAB
     Indication: Relapsing-remitting multiple sclerosis
     Dosage: THEN 600 MG EVERY 6 MONTHS
     Route: 040
     Dates: start: 20211126
  2. CYCLOBENZAPRINE [Concomitant]
     Active Substance: CYCLOBENZAPRINE
  3. TYLENOL [Concomitant]
     Active Substance: ACETAMINOPHEN
  4. LISINOPRIL [Concomitant]
     Active Substance: LISINOPRIL
  5. OXYBUTYNIN [Concomitant]
     Active Substance: OXYBUTYNIN

REACTIONS (29)
  - Multiple sclerosis [Unknown]
  - Pneumonia [Not Recovered/Not Resolved]
  - Nasopharyngitis [Recovering/Resolving]
  - Anal incontinence [Not Recovered/Not Resolved]
  - Wheezing [Unknown]
  - Coordination abnormal [Not Recovered/Not Resolved]
  - Pain [Not Recovered/Not Resolved]
  - Sleep disorder [Not Recovered/Not Resolved]
  - Dyspnoea [Unknown]
  - Fatigue [Not Recovered/Not Resolved]
  - Drug ineffective [Unknown]
  - Condition aggravated [Not Recovered/Not Resolved]
  - Renal disorder [Unknown]
  - Feeling hot [Unknown]
  - Hyperhidrosis [Unknown]
  - Fall [Unknown]
  - Musculoskeletal disorder [Unknown]
  - Lower respiratory tract infection [Not Recovered/Not Resolved]
  - Pain [Unknown]
  - Pyrexia [Unknown]
  - Dysphagia [Not Recovered/Not Resolved]
  - Choking [Recovered/Resolved with Sequelae]
  - Weight increased [Not Recovered/Not Resolved]
  - Balance disorder [Unknown]
  - Asthenia [Unknown]
  - Bladder discomfort [Not Recovered/Not Resolved]
  - Muscle strain [Unknown]
  - Mobility decreased [Unknown]
  - Movement disorder [Unknown]

NARRATIVE: CASE EVENT DATE: 20240618
